FAERS Safety Report 8103002-7 (Version None)
Quarter: 2012Q1

REPORT INFORMATION
  Report Type: 
  Country: None (occurrence: None)
  Receive Date: 20120127
  Receipt Date: 20120116
  Transmission Date: 20120608
  Serious: Yes (Hospitalization, Other)
  Sender: FDA-Public Use
  Company Number: 2012P1002801

PATIENT
  Age: 17 Year
  Sex: Female

DRUGS (1)
  1. DIPHENHYDRAMINE HCL [Suspect]
     Indication: SUICIDE ATTEMPT
     Dosage: 1800 MG; X11; PO
     Route: 048

REACTIONS (12)
  - DELIRIUM [None]
  - HALLUCINATIONS, MIXED [None]
  - SUICIDE ATTEMPT [None]
  - INCOHERENT [None]
  - HYPERHIDROSIS [None]
  - MYOCLONUS [None]
  - MUSCLE RIGIDITY [None]
  - DISORIENTATION [None]
  - OVERDOSE [None]
  - WHITE BLOOD CELL COUNT INCREASED [None]
  - BLOOD CREATINE PHOSPHOKINASE INCREASED [None]
  - HYPERREFLEXIA [None]
